FAERS Safety Report 8511592-5 (Version None)
Quarter: 2012Q3

REPORT INFORMATION
  Report Type: 
  Country: None (occurrence: None)
  Receive Date: 20120716
  Receipt Date: 20120710
  Transmission Date: 20120928
  Serious: Yes (Hospitalization)
  Sender: FDA-Public Use
  Company Number: PHHY2012JP002526

PATIENT
  Sex: Female

DRUGS (24)
  1. CLOZARIL [Suspect]
     Indication: SCHIZOPHRENIA
     Dosage: 12.5 MG, UNK
     Route: 048
     Dates: start: 20110915
  2. CLOZARIL [Suspect]
     Dosage: 100 MG, UNK
     Route: 048
     Dates: start: 20110929, end: 20111005
  3. CLOZARIL [Suspect]
     Dosage: 200 MG, UNK
     Route: 048
     Dates: start: 20111125, end: 20111130
  4. TASMOLIN [Concomitant]
     Dosage: 3 MG, UNK
     Route: 048
     Dates: end: 20120106
  5. NIZATIDINE [Concomitant]
     Indication: SCHIZOPHRENIA, PARANOID TYPE
     Dosage: 150 MG, UNK
     Route: 048
     Dates: start: 20110814, end: 20120106
  6. CLOZARIL [Suspect]
     Dosage: 200 MG, UNK
     Route: 048
     Dates: start: 20111006, end: 20111012
  7. CLOZARIL [Suspect]
     Dosage: 300 MG, UNK
     Route: 048
     Dates: start: 20111013, end: 20111019
  8. HALOPERIDOL [Concomitant]
     Dates: start: 20120106
  9. PRIMPERAN TAB [Concomitant]
     Indication: SCHIZOPHRENIA, PARANOID TYPE
     Dosage: 15 MG, UNK
     Route: 048
     Dates: start: 20110814, end: 20120106
  10. CLOZARIL [Suspect]
     Dosage: 400 MG, UNK
     Route: 048
     Dates: start: 20111020, end: 20111124
  11. RISPERIDONE [Concomitant]
     Dosage: 6 MG, UNK
     Route: 048
  12. ZOTEPINE [Concomitant]
     Dosage: 50 MG, UNK
     Route: 048
     Dates: end: 20111102
  13. DIAZEPAM [Concomitant]
     Dosage: 6 MG, UNK
     Route: 048
     Dates: start: 20111027, end: 20120106
  14. CLOZARIL [Suspect]
     Dosage: 400 MG, UNK
     Route: 048
     Dates: start: 20111208, end: 20120106
  15. RISPERIDONE [Concomitant]
     Dosage: 8 MG, UNK
     Route: 048
     Dates: start: 20110915
  16. ZOTEPINE [Concomitant]
     Dosage: 75 MG, UNK
     Route: 048
  17. FLUNITRAZEPAM [Concomitant]
     Indication: SCHIZOPHRENIA, PARANOID TYPE
     Dosage: 2 MG, UNK
     Route: 048
     Dates: start: 20110807, end: 20120106
  18. CLOZARIL [Suspect]
     Dosage: 300 MG, UNK
     Route: 048
     Dates: start: 20111201, end: 20111207
  19. MUCOSTA [Concomitant]
     Indication: SCHIZOPHRENIA, PARANOID TYPE
     Dosage: 300 MG, UNK
     Route: 048
     Dates: start: 20110814, end: 20120106
  20. CLOZARIL [Suspect]
     Dosage: 50 MG, UNK
     Route: 048
     Dates: start: 20110922, end: 20110928
  21. RISPERIDONE [Concomitant]
     Dosage: 4 MG, UNK
     Route: 048
     Dates: end: 20111019
  22. ZOTEPINE [Concomitant]
     Dosage: 100 MG, UNK
     Route: 048
     Dates: start: 20110915
  23. CLOZARIL [Suspect]
     Dosage: 25 MG, UNK
     Route: 048
     Dates: start: 20110916, end: 20110921
  24. TASMOLIN [Concomitant]
     Indication: SCHIZOPHRENIA, PARANOID TYPE
     Dosage: 2 MG, UNK
     Route: 048
     Dates: start: 20120106

REACTIONS (2)
  - RESPIRATORY FAILURE [None]
  - WHITE BLOOD CELL COUNT INCREASED [None]
